FAERS Safety Report 5002014-X (Version None)
Quarter: 2006Q2

REPORT INFORMATION
  Report Type: 
  Country: None (occurrence: None)
  Receive Date: 20060515
  Receipt Date: 20060328
  Transmission Date: 20061013
  Serious: Yes (Hospitalization)
  Sender: FDA-Public Use
  Company Number: US-ROCHE-442187

PATIENT
  Sex: Male
  Weight: 71.8 kg

DRUGS (14)
  1. CELLCEPT [Suspect]
     Route: 048
  2. CELLCEPT [Suspect]
     Route: 042
     Dates: start: 20050916
  3. PROGRAF [Concomitant]
  4. PREDNISONE TAB [Concomitant]
  5. VALCYTE [Concomitant]
  6. CARDIZEM [Concomitant]
  7. CATAPRES [Concomitant]
  8. LOPRESSOR [Concomitant]
  9. NORVASC [Concomitant]
  10. NYSTATIN [Concomitant]
  11. PREVACID [Concomitant]
  12. MICRONASE [Concomitant]
  13. OMNICEF [Concomitant]
  14. MYFORTIC [Concomitant]

REACTIONS (9)
  - ASTHENIA [None]
  - BLOOD GLUCOSE FLUCTUATION [None]
  - DIARRHOEA [None]
  - GASTRITIS [None]
  - HIATUS HERNIA [None]
  - OESOPHAGEAL OEDEMA [None]
  - OESOPHAGITIS ULCERATIVE [None]
  - URINARY TRACT INFECTION [None]
  - VOMITING [None]
